FAERS Safety Report 21633216 (Version 1)
Quarter: 2022Q4

REPORT INFORMATION
  Report Type: Spontaneous
  Country: US (occurrence: None)
  Receive Date: 20221122
  Receipt Date: 20221122
  Transmission Date: 20230112
  Serious: Yes (Other)
  Sender: FDA-Public Use
  Company Number: None

PATIENT
  Sex: Female

DRUGS (9)
  1. COSENTYX [Suspect]
     Active Substance: SECUKINUMAB
     Indication: Psoriatic arthropathy
     Route: 058
     Dates: start: 20181106
  2. ASPIRIN [Concomitant]
     Active Substance: ASPIRIN
  3. CALCIUM CL [Concomitant]
  4. FISH OIL [Concomitant]
  5. GEMFIBROZIL [Concomitant]
     Active Substance: GEMFIBROZIL
  6. MULTIVITAMIN TAB WOMENS [Concomitant]
  7. NORVASC [Concomitant]
     Active Substance: AMLODIPINE BESYLATE
  8. SYNTHROID [Concomitant]
     Active Substance: LEVOTHYROXINE SODIUM
  9. VITAMIN C [Concomitant]
     Active Substance: ASCORBIC ACID

REACTIONS (1)
  - Procedural pain [None]
